FAERS Safety Report 17281449 (Version 2)
Quarter: 2020Q1

REPORT INFORMATION
  Report Type: Spontaneous
  Country: FR (occurrence: FR)
  Receive Date: 20200117
  Receipt Date: 20200122
  Transmission Date: 20200409
  Serious: Yes (Hospitalization)
  Sender: FDA-Public Use
  Company Number: FR-ACCORD-169684

PATIENT
  Age: 66 Year
  Sex: Female
  Weight: 93 kg

DRUGS (4)
  1. PANTOPRAZOLE [Suspect]
     Active Substance: PANTOPRAZOLE
     Indication: RADIATION OESOPHAGITIS
     Route: 042
     Dates: start: 20191129, end: 20191211
  2. CARBOPLATIN. [Suspect]
     Active Substance: CARBOPLATIN
     Indication: LUNG NEOPLASM MALIGNANT
     Dosage: UNIT DOSE
     Route: 041
     Dates: start: 20191122, end: 20191122
  3. PACLITAXEL/PACLITAXEL LIPOSOME [Suspect]
     Active Substance: PACLITAXEL
     Indication: LUNG NEOPLASM MALIGNANT
     Dosage: SINGLE DOSE
     Route: 041
     Dates: start: 20191122, end: 20191122
  4. ZOPHREN [Concomitant]
     Active Substance: ONDANSETRON
     Indication: VOMITING
     Dosage: STRENGTH-2MG/ML, 4MG EVERY 6H PER OS ON 1ST AND 2/12 8MG / 24H FROM 02/12 TO 07/12.
     Route: 042
     Dates: start: 20191202, end: 20191221

REACTIONS (2)
  - Neutropenia [Recovered/Resolved]
  - Aplasia [Recovering/Resolving]

NARRATIVE: CASE EVENT DATE: 20191129
